FAERS Safety Report 8902337 (Version 2)
Quarter: 2013Q1

REPORT INFORMATION
  Report Type: Spontaneous
  Country: US (occurrence: US)
  Receive Date: 20121112
  Receipt Date: 20130220
  Transmission Date: 20140127
  Serious: Yes (Hospitalization)
  Sender: FDA-Public Use
  Company Number: US-BAYER-2012-115436

PATIENT
  Age: 51 Year
  Sex: Female
  Weight: 52.61 kg

DRUGS (1)
  1. STIVARGA [Suspect]
     Indication: COLON CANCER METASTATIC
     Dosage: 160 MG, DAILY
     Route: 048
     Dates: start: 20121019

REACTIONS (4)
  - Hypersensitivity [Recovered/Resolved]
  - Rash erythematous [None]
  - Pyrexia [None]
  - Vomiting [None]
